FAERS Safety Report 10174282 (Version 2)
Quarter: 2014Q2

REPORT INFORMATION
  Report Type: Spontaneous
  Country: BR (occurrence: BR)
  Receive Date: 20140515
  Receipt Date: 20140530
  Transmission Date: 20141212
  Serious: Yes (Other)
  Sender: FDA-Public Use
  Company Number: BR-SA-2014SA058638

PATIENT
  Age: 42 Year
  Sex: Female
  Weight: 65 kg

DRUGS (5)
  1. APIDRA [Suspect]
     Indication: TYPE 1 DIABETES MELLITUS
     Dosage: FREQUENCY: PER MEAL??START DATE: APPROX 4 YEARS
     Route: 058
  2. LANTUS [Suspect]
     Indication: TYPE 1 DIABETES MELLITUS
     Dosage: STRAT DATE: APPROX 4 YEARS AGO
     Route: 058
  3. DEVICE NOS [Concomitant]
     Indication: DEVICE THERAPY
  4. DEVICE NOS [Concomitant]
     Indication: DEVICE THERAPY
  5. LOSARTAN [Concomitant]
     Dosage: AFTER LUNCH
     Route: 048

REACTIONS (2)
  - Retinopathy [Recovering/Resolving]
  - Visual acuity reduced [Recovering/Resolving]
